FAERS Safety Report 9976059 (Version 1)
Quarter: 2014Q1

REPORT INFORMATION
  Report Type: Spontaneous
  Country: US (occurrence: US)
  Receive Date: 20140306
  Receipt Date: 20140306
  Transmission Date: 20141002
  Serious: Yes (Congenital Anomaly, Other)
  Sender: FDA-Public Use
  Company Number: US-FRI-1000054760

PATIENT
  Sex: Male

DRUGS (2)
  1. LEXAPRO [Suspect]
     Indication: ANXIETY
     Route: 064
     Dates: start: 2009
  2. LEXAPRO [Suspect]
     Indication: DEPRESSION

REACTIONS (4)
  - Hydrocephalus [Unknown]
  - Congenital torticollis [Unknown]
  - Speech disorder developmental [Not Recovered/Not Resolved]
  - Autism [Not Recovered/Not Resolved]
